FAERS Safety Report 18061854 (Version 2)
Quarter: 2020Q3

REPORT INFORMATION
  Report Type: Spontaneous
  Country: ES (occurrence: ES)
  Receive Date: 20200723
  Receipt Date: 20200826
  Transmission Date: 20201103
  Serious: Yes (Other)
  Sender: FDA-Public Use
  Company Number: ES-PFIZER INC-2020280041

PATIENT
  Age: 35 Year
  Sex: Female
  Weight: 68 kg

DRUGS (3)
  1. VANDRAL RETARD [Suspect]
     Active Substance: VENLAFAXINE HYDROCHLORIDE
     Indication: DEPRESSION
     Dosage: 75 MG C/12 H
     Route: 048
     Dates: start: 20200630
  2. LORAZEPAM CINFA [Suspect]
     Active Substance: LORAZEPAM
     Indication: DEPRESSION
     Dosage: 1 MG, 1X/DAY (BEFORE BEDTIME)
     Route: 048
     Dates: start: 20200617
  3. SINTROM [Suspect]
     Active Substance: ACENOCOUMAROL
     Indication: COAGULOPATHY
     Dosage: UNK
     Route: 048
     Dates: start: 20140307, end: 20200705

REACTIONS (4)
  - Dyskinesia [Recovered/Resolved]
  - Hallucination [Not Recovered/Not Resolved]
  - Haematoma [Not Recovered/Not Resolved]
  - Nervousness [Not Recovered/Not Resolved]

NARRATIVE: CASE EVENT DATE: 20200630
